FAERS Safety Report 26114700 (Version 4)
Quarter: 2025Q4

REPORT INFORMATION
  Report Type: Spontaneous
  Country: GB (occurrence: GB)
  Receive Date: 20251202
  Receipt Date: 20251224
  Transmission Date: 20260117
  Serious: Yes (Hospitalization)
  Sender: SANDOZ
  Company Number: GB-MLMSERVICE-20251117-PI717541-00031-1

PATIENT
  Age: 40 Year
  Sex: Male

DRUGS (4)
  1. OMEPRAZOLE [Suspect]
     Active Substance: OMEPRAZOLE
     Indication: Oesophageal ulcer haemorrhage
     Dosage: UNK, HIGH DOSE, CUMULATIVE DOSE TO FIRST REACTION (1000 MG)
  2. FERINJECT [Suspect]
     Active Substance: FERRIC CARBOXYMALTOSE
     Indication: Anaemia
     Dosage: 1000 MG
  3. FERINJECT [Suspect]
     Active Substance: FERRIC CARBOXYMALTOSE
     Dosage: 1000 MG, PRIOR TO DISCHARGE
  4. EPINEPHRINE [Concomitant]
     Active Substance: EPINEPHRINE
     Indication: Oesophageal ulcer haemorrhage
     Dosage: UNK

REACTIONS (1)
  - Hypophosphataemia [Recovering/Resolving]

NARRATIVE: CASE EVENT DATE: 20240401
